FAERS Safety Report 5004147-0 (Version None)
Quarter: 2006Q2

REPORT INFORMATION
  Report Type: 
  Country: None (occurrence: None)
  Receive Date: 20060517
  Receipt Date: 20060516
  Transmission Date: 20061013
  Serious: Yes (Life-Threatening)
  Sender: FDA-Public Use
  Company Number: FR-JNJFOC-20060503538

PATIENT
  Age: 75 Year
  Sex: Female

DRUGS (2)
  1. DURAGESIC-100 [Suspect]
     Indication: ABDOMINAL PAIN
     Route: 062
  2. MORPHINE SULFATE [Suspect]
     Indication: ABDOMINAL PAIN
     Route: 048

REACTIONS (4)
  - DRUG TOXICITY [None]
  - LUNG INFECTION [None]
  - OVERDOSE [None]
  - SOMNOLENCE [None]
